FAERS Safety Report 15008946 (Version 1)
Quarter: 2018Q2

REPORT INFORMATION
  Report Type: Spontaneous
  Country: FR (occurrence: FR)
  Receive Date: 20180614
  Receipt Date: 20180614
  Transmission Date: 20180711
  Serious: Yes (Hospitalization)
  Sender: FDA-Public Use
  Company Number: FR-TEVA-2018-FR-905895

PATIENT
  Age: 82 Year
  Sex: Female
  Weight: 43 kg

DRUGS (3)
  1. FURADANTINE 50 MG, G?LULE [Suspect]
     Active Substance: NITROFURANTOIN
     Indication: URINARY TRACT INFECTION
     Route: 048
     Dates: start: 20180103
  2. LYRICA [Concomitant]
     Active Substance: PREGABALIN
     Route: 048
  3. ELIQUIS [Concomitant]
     Active Substance: APIXABAN
     Route: 048

REACTIONS (1)
  - Anaphylactoid shock [Recovered/Resolved]

NARRATIVE: CASE EVENT DATE: 20180103
